FAERS Safety Report 18673438 (Version 2)
Quarter: 2021Q1

REPORT INFORMATION
  Report Type: Spontaneous
  Country: PL (occurrence: PL)
  Receive Date: 20201228
  Receipt Date: 20210122
  Transmission Date: 20210419
  Serious: Yes (Other)
  Sender: FDA-Public Use
  Company Number: PL-PFIZER INC-2020507250

PATIENT
  Age: 38 Year
  Sex: Male

DRUGS (3)
  1. PREGABALIN. [Suspect]
     Active Substance: PREGABALIN
     Dosage: 150 MG
  2. PREGABALIN. [Suspect]
     Active Substance: PREGABALIN
     Dosage: 225 MG
  3. PREGABALIN. [Suspect]
     Active Substance: PREGABALIN
     Indication: GENERALISED ANXIETY DISORDER
     Dosage: 75 MG

REACTIONS (6)
  - Bradyphrenia [Unknown]
  - Intellectual disability [Unknown]
  - Therapeutic product effect increased [Unknown]
  - Dementia [Unknown]
  - Condition aggravated [Unknown]
  - Affective disorder [Unknown]
